FAERS Safety Report 4398413-X (Version None)
Quarter: 2004Q3

REPORT INFORMATION
  Report Type: 
  Country: None (occurrence: None)
  Receive Date: 20040714
  Receipt Date: 20040714
  Transmission Date: 20050211
  Serious: Yes (Other)
  Sender: FDA-Public Use
  Company Number: None

PATIENT
  Age: 59 Year
  Sex: Female
  Weight: 120.6568 kg

DRUGS (3)
  1. EMEND [Suspect]
     Indication: CHEMOTHERAPY
     Dosage: 125 MG 1 HR BEFORE CHEMO THEN 80 MG DAY 2 AND DAY 3
  2. EMEND [Suspect]
     Indication: NAUSEA
     Dosage: 125 MG 1 HR BEFORE CHEMO THEN 80 MG DAY 2 AND DAY 3
  3. EMEND [Suspect]
     Indication: VOMITING
     Dosage: 125 MG 1 HR BEFORE CHEMO THEN 80 MG DAY 2 AND DAY 3

REACTIONS (2)
  - HEADACHE [None]
  - NECK PAIN [None]
